FAERS Safety Report 24332018 (Version 1)
Quarter: 2024Q3

REPORT INFORMATION
  Report Type: Spontaneous
  Country: GB (occurrence: GB)
  Receive Date: 20240918
  Receipt Date: 20240918
  Transmission Date: 20241017
  Serious: Yes (Other)
  Sender: AUROBINDO
  Company Number: GB-RP-043396

PATIENT

DRUGS (1)
  1. ALENDRONIC ACID [Suspect]
     Active Substance: ALENDRONIC ACID
     Indication: Product used for unknown indication
     Dosage: UNK
     Route: 065

REACTIONS (7)
  - Aspiration [Unknown]
  - Bronchitis chemical [Unknown]
  - Chemical burn of respiratory tract [Unknown]
  - Vocal cord dysfunction [Unknown]
  - Stridor [Unknown]
  - Hypersensitivity [Unknown]
  - Obstructive airways disorder [Unknown]
